FAERS Safety Report 9549904 (Version 13)
Quarter: 2017Q4

REPORT INFORMATION
  Report Type: Spontaneous
  Country: CA (occurrence: CA)
  Receive Date: 20130924
  Receipt Date: 20171114
  Transmission Date: 20180321
  Serious: Yes (Hospitalization, Other)
  Sender: FDA-Public Use
  Company Number: CA-GLAXOSMITHKLINE-A1022419A

PATIENT
  Age: 46 Year
  Sex: Female
  Weight: 55 kg

DRUGS (9)
  1. PREDNISONE. [Concomitant]
     Active Substance: PREDNISONE
     Indication: PRODUCT USED FOR UNKNOWN INDICATION
     Dosage: UNK
  2. BENLYSTA [Suspect]
     Active Substance: BELIMUMAB
     Dosage: 6.88 ML, UNK
     Route: 042
     Dates: start: 20160120
  3. NAPROXEN. [Concomitant]
     Active Substance: NAPROXEN
     Indication: PRODUCT USED FOR UNKNOWN INDICATION
     Dosage: 375 MG, UNK
  4. METHOTREXATE. [Concomitant]
     Active Substance: METHOTREXATE
     Indication: PRODUCT USED FOR UNKNOWN INDICATION
     Dosage: UNK
  5. BENLYSTA [Suspect]
     Active Substance: BELIMUMAB
     Dosage: 550 MG, UNK
     Route: 042
     Dates: start: 20150604, end: 20160210
  6. BENLYSTA [Suspect]
     Active Substance: BELIMUMAB
     Dosage: 550 MG, UNK
     Route: 042
  7. BENLYSTA [Suspect]
     Active Substance: BELIMUMAB
     Dosage: 550 MG, UNK
     Route: 042
  8. BENLYSTA [Suspect]
     Active Substance: BELIMUMAB
     Dosage: UNK
     Route: 042
     Dates: start: 20160324, end: 20161130
  9. BENLYSTA [Suspect]
     Active Substance: BELIMUMAB
     Indication: SYSTEMIC LUPUS ERYTHEMATOSUS
     Dosage: 0, 2, 4, THEN EVERY 4 WEEKS
     Route: 042
     Dates: start: 20130214

REACTIONS (25)
  - Acne [Unknown]
  - Productive cough [Unknown]
  - Limb operation [Unknown]
  - Pain [Unknown]
  - Myalgia [Unknown]
  - Sinusitis [Unknown]
  - Hospitalisation [Not Recovered/Not Resolved]
  - Lung infection [Recovering/Resolving]
  - Rash macular [Unknown]
  - Bronchitis [Unknown]
  - Abdominal infection [Unknown]
  - Bone pain [Unknown]
  - Infusion site reaction [Unknown]
  - Road traffic accident [Unknown]
  - Fall [Unknown]
  - Infection [Not Recovered/Not Resolved]
  - Eye infection [Unknown]
  - Pharyngitis [Unknown]
  - Swelling [Unknown]
  - Fatigue [Unknown]
  - Limb injury [Unknown]
  - Drug dose omission [Unknown]
  - Bacterial infection [Recovered/Resolved]
  - Arthralgia [Unknown]
  - Ear infection [Unknown]

NARRATIVE: CASE EVENT DATE: 20130417
